FAERS Safety Report 5181124-0 (Version None)
Quarter: 2006Q4

REPORT INFORMATION
  Report Type: 
  Country: None (occurrence: None)
  Receive Date: 20061212
  Receipt Date: 20061201
  Transmission Date: 20070319
  Serious: Yes (Other)
  Sender: FDA-Public Use
  Company Number: 2006149407

PATIENT
  Age: 61 Year
  Sex: Female
  Weight: 52.1637 kg

DRUGS (13)
  1. LIPITOR [Suspect]
     Dosage: 10 MG (10 MG, 1 IN 1 D)
     Dates: start: 20020601, end: 20060701
  2. PRILOSEC [Concomitant]
  3. PLAVIX [Concomitant]
  4. GLUCOPHAGE [Concomitant]
  5. DYAZIDE [Concomitant]
  6. NITRO-BID [Concomitant]
  7. ASPIRIN [Concomitant]
  8. PRINIVIL [Concomitant]
  9. LOPRESSOR [Concomitant]
  10. FOLIC ACID [Concomitant]
  11. TRICOR [Concomitant]
  12. MOTRIN [Concomitant]
  13. ZESTRIL [Concomitant]

REACTIONS (1)
  - MYOCARDIAL INFARCTION [None]
